FAERS Safety Report 18454440 (Version 1)
Quarter: 2020Q4

REPORT INFORMATION
  Report Type: Spontaneous
  Country: ES (occurrence: ES)
  Receive Date: 20201102
  Receipt Date: 20201102
  Transmission Date: 20210114
  Serious: Yes (Other)
  Sender: FDA-Public Use
  Company Number: ES-UCBSA-2020043624

PATIENT
  Age: 52 Year
  Sex: Male

DRUGS (5)
  1. BRIVIACT [Suspect]
     Active Substance: BRIVARACETAM
     Indication: PARTIAL SEIZURES
     Dosage: UNK
  2. LEVETIRACETAM. [Suspect]
     Active Substance: LEVETIRACETAM
     Indication: PARTIAL SEIZURES
     Dosage: UNK
  3. ZONISAMIDE. [Suspect]
     Active Substance: ZONISAMIDE
     Indication: PARTIAL SEIZURES
     Dosage: UNK
  4. BRIVIACT [Suspect]
     Active Substance: BRIVARACETAM
     Dosage: 100 MILLIGRAM, 3X/DAY (TID)
  5. VIMPAT [Suspect]
     Active Substance: LACOSAMIDE
     Indication: PARTIAL SEIZURES
     Dosage: UNK

REACTIONS (6)
  - Mood swings [Unknown]
  - Multiple-drug resistance [Unknown]
  - Overdose [Unknown]
  - Irritability [Unknown]
  - Product use issue [Unknown]
  - Generalised tonic-clonic seizure [Recovered/Resolved]

NARRATIVE: CASE EVENT DATE: 2019
